FAERS Safety Report 12563711 (Version 2)
Quarter: 2016Q3

REPORT INFORMATION
  Report Type: Spontaneous
  Country: US (occurrence: US)
  Receive Date: 20160716
  Receipt Date: 20160824
  Transmission Date: 20161109
  Serious: Yes (Hospitalization, Other)
  Sender: FDA-Public Use
  Company Number: US-ASTRAZENECA-2016SE74745

PATIENT
  Sex: Male

DRUGS (24)
  1. FUROSEMIDE. [Concomitant]
     Active Substance: FUROSEMIDE
  2. VANCOMYCIN [Concomitant]
     Active Substance: VANCOMYCIN
  3. FLOMAX [Concomitant]
     Active Substance: TAMSULOSIN HYDROCHLORIDE
  4. SYNTHROID [Concomitant]
     Active Substance: LEVOTHYROXINE SODIUM
  5. PROTONIX [Concomitant]
     Active Substance: PANTOPRAZOLE SODIUM
     Dosage: AS NEEDED FOR PAIN
  6. FLUOXETINE [Concomitant]
     Active Substance: FLUOXETINE HYDROCHLORIDE
     Indication: DEPRESSION
  7. PROBIOTIC [Concomitant]
     Active Substance: PROBIOTICS NOS
  8. METOPROLOL SUCCINATE. [Suspect]
     Active Substance: METOPROLOL SUCCINATE
     Route: 048
  9. PEPCID [Concomitant]
     Active Substance: FAMOTIDINE
  10. ATORVASTATIN CALCIUM. [Concomitant]
     Active Substance: ATORVASTATIN CALCIUM
  11. HYDROCODONE [Concomitant]
     Active Substance: HYDROCODONE
  12. LISINOPRIL. [Suspect]
     Active Substance: LISINOPRIL
     Route: 048
  13. COUMADIN [Concomitant]
     Active Substance: WARFARIN SODIUM
  14. DIGOXIN. [Concomitant]
     Active Substance: DIGOXIN
  15. BRILINTA [Suspect]
     Active Substance: TICAGRELOR
     Route: 048
  16. FLUOXETINE HYDROCHLORIDE. [Concomitant]
     Active Substance: FLUOXETINE HYDROCHLORIDE
     Indication: DEPRESSION
  17. POTASSIUM [Concomitant]
     Active Substance: POTASSIUM
  18. METOPROLOL TARTRATE. [Concomitant]
     Active Substance: METOPROLOL TARTRATE
  19. BABY ASPIRIN [Concomitant]
     Active Substance: ASPIRIN
  20. TRADJENTA [Concomitant]
     Active Substance: LINAGLIPTIN
  21. IRON [Concomitant]
     Active Substance: IRON
  22. SPIRONOLACTONE. [Concomitant]
     Active Substance: SPIRONOLACTONE
  23. LASIX [Concomitant]
     Active Substance: FUROSEMIDE
  24. MVI [Concomitant]
     Active Substance: VITAMINS

REACTIONS (24)
  - Retroperitoneal haematoma [Recovered/Resolved]
  - Dyspnoea [Recovered/Resolved]
  - Nephrolithiasis [Recovered/Resolved]
  - Thrombosis [Not Recovered/Not Resolved]
  - Internal haemorrhage [Recovered/Resolved]
  - Sepsis [Recovered/Resolved]
  - Weight decreased [Recovered/Resolved]
  - Dysphagia [Recovered/Resolved]
  - Diarrhoea [Unknown]
  - Oedema [Unknown]
  - Body temperature decreased [Recovered/Resolved]
  - Rotator cuff syndrome [Recovered/Resolved]
  - Dysgeusia [Recovered/Resolved]
  - Abdominal infection [Recovered/Resolved]
  - Nausea [Unknown]
  - Decubitus ulcer [Recovered/Resolved]
  - Subcutaneous abscess [Recovered/Resolved]
  - Abdominal pain upper [Not Recovered/Not Resolved]
  - Skin disorder [Not Recovered/Not Resolved]
  - Haematoma [Recovered/Resolved]
  - Clostridium test positive [Recovered/Resolved]
  - Haemoglobin decreased [Recovered/Resolved]
  - Skin ulcer [Recovered/Resolved]
  - Urine output decreased [Recovered/Resolved]
